FAERS Safety Report 4828440-7 (Version None)
Quarter: 2005Q4

REPORT INFORMATION
  Report Type: 
  Country: None (occurrence: None)
  Receive Date: 20051109
  Receipt Date: 20051028
  Transmission Date: 20060501
  Serious: Yes (Hospitalization)
  Sender: FDA-Public Use
  Company Number: 200511007BVD

PATIENT
  Age: 76 Year
  Sex: Male
  Weight: 68 kg

DRUGS (24)
  1. GAMUNEX [Suspect]
     Indication: IMMUNODEFICIENCY
     Dosage: 20 G, TOTAL DAILY, INTRAVENOUS
     Route: 042
     Dates: start: 20050711
  2. GAMUNEX [Suspect]
     Indication: IMMUNODEFICIENCY
     Dosage: 20 G, TOTAL DAILY, INTRAVENOUS
     Route: 042
     Dates: start: 20050712
  3. GAMUNEX [Suspect]
     Dates: start: 20050713
  4. GAMUNEX [Suspect]
     Dates: start: 20050714
  5. GAMUNEX [Suspect]
  6. GAMUNEX [Suspect]
     Dates: start: 20050711
  7. GAMUNEX [Suspect]
     Dates: start: 20050715
  8. GAMUNEX [Suspect]
  9. GAMUNEX [Suspect]
     Dates: start: 20050712
  10. GAMUNEX [Suspect]
     Dates: start: 20050712
  11. GAMUNEX [Suspect]
  12. GAMUNEX [Suspect]
     Dates: start: 20050713
  13. GAMUNEX [Suspect]
  14. GAMUNEX [Suspect]
     Dates: start: 20050715
  15. GAMUNEX [Suspect]
  16. DECORTIN [Concomitant]
  17. THEOPHYLLINE [Concomitant]
  18. CORIFEO [Concomitant]
  19. MCP [Concomitant]
  20. TRAMADOL HCL [Concomitant]
  21. PENTAERYTHRITOL TETRANITRATE [Concomitant]
  22. NEXIUM [Concomitant]
  23. OMEPRAZOLE [Concomitant]
  24. GAMUNEX [Suspect]
     Dosage: 10 G TOTAL DAILY
     Route: 042
     Dates: start: 20050714

REACTIONS (1)
  - ACUTE CORONARY SYNDROME [None]
